FAERS Safety Report 8391690-X (Version None)
Quarter: 2012Q2

REPORT INFORMATION
  Report Type: 
  Country: None (occurrence: None)
  Receive Date: 20120529
  Receipt Date: 20120515
  Transmission Date: 20120825
  Serious: Yes (Other)
  Sender: FDA-Public Use
  Company Number: US-JNJFOC-20120515178

PATIENT
  Sex: Male
  Weight: 34.47 kg

DRUGS (5)
  1. CONCERTA [Suspect]
     Indication: DEPRESSION
     Route: 048
     Dates: start: 20110101, end: 20120501
  2. CONCERTA [Suspect]
     Indication: OPPOSITIONAL DEFIANT DISORDER
     Route: 048
     Dates: start: 20110101, end: 20120501
  3. CONCERTA [Suspect]
     Indication: OBSESSIVE-COMPULSIVE DISORDER
     Route: 048
     Dates: start: 20110101, end: 20120501
  4. CONCERTA [Suspect]
     Indication: ATTENTION DEFICIT/HYPERACTIVITY DISORDER
     Route: 048
     Dates: start: 20110101, end: 20120501
  5. CLONIDINE [Concomitant]
     Indication: INSOMNIA
     Route: 048
     Dates: start: 20110101

REACTIONS (4)
  - GASTROENTERITIS VIRAL [None]
  - DRUG DOSE OMISSION [None]
  - PHARYNGEAL ERYTHEMA [None]
  - SINUS OPERATION [None]
